FAERS Safety Report 7085303-7 (Version None)
Quarter: 2010Q4

REPORT INFORMATION
  Report Type: 
  Country: None (occurrence: None)
  Receive Date: 20101105
  Receipt Date: 20101029
  Transmission Date: 20110411
  Serious: Yes (Hospitalization, Other)
  Sender: FDA-Public Use
  Company Number: FR-PFIZER INC-2010137785

PATIENT
  Age: 88 Year
  Sex: Male

DRUGS (5)
  1. ALDACTONE [Suspect]
     Dosage: 25 MG, 1X/DAY
     Route: 048
     Dates: end: 20100311
  2. ALDACTONE [Suspect]
     Dosage: 12.5 MG, ALTERNATE DAY
     Route: 048
     Dates: start: 20100311
  3. ZESTRIL [Suspect]
     Indication: HYPERTENSION
     Dosage: 20 MG, 1X/DAY
     Route: 048
     Dates: end: 20100318
  4. CALCIPARINE [Suspect]
     Dosage: UNK
     Route: 058
     Dates: start: 20100201, end: 20100314
  5. DIAMICRON [Concomitant]

REACTIONS (2)
  - CONDITION AGGRAVATED [None]
  - RENAL FAILURE ACUTE [None]
